FAERS Safety Report 20516577 (Version 2)
Quarter: 2022Q1

REPORT INFORMATION
  Report Type: Report from Study
  Country: CO (occurrence: CO)
  Receive Date: 20220225
  Receipt Date: 20220304
  Transmission Date: 20220423
  Serious: Yes (Hospitalization, Other)
  Sender: FDA-Public Use
  Company Number: CO-ABBVIE-22K-036-4291936-00

PATIENT
  Age: 74 Year
  Sex: Male
  Weight: 65 kg

DRUGS (1)
  1. VENETOCLAX [Suspect]
     Active Substance: VENETOCLAX
     Indication: Chronic lymphocytic leukaemia
     Route: 048
     Dates: start: 20200814

REACTIONS (3)
  - Chest pain [Recovering/Resolving]
  - Acute myocardial infarction [Recovering/Resolving]
  - Troponin abnormal [Recovering/Resolving]

NARRATIVE: CASE EVENT DATE: 20220222
